FAERS Safety Report 9331595 (Version 1)
Quarter: 2013Q2

REPORT INFORMATION
  Report Type: Report from Study
  Country: US (occurrence: US)
  Receive Date: 20130605
  Receipt Date: 20130605
  Transmission Date: 20140414
  Serious: Yes (Hospitalization, Other)
  Sender: FDA-Public Use
  Company Number: US-BAYER-2011-010049

PATIENT
  Age: 53 Year
  Sex: Female

DRUGS (3)
  1. BETASERON [Suspect]
     Indication: MULTIPLE SCLEROSIS
     Dosage: 8 MIU, QOD
     Route: 058
     Dates: start: 20011015, end: 20120930
  2. KEFLEX [Concomitant]
     Dosage: 250 MG, UNK
     Dates: start: 20130503, end: 20130509
  3. BACTRIM [Concomitant]
     Dosage: 800/150MG BID

REACTIONS (11)
  - Cellulitis [Recovering/Resolving]
  - Injection site necrosis [Recovered/Resolved]
  - Injection site reaction [Not Recovered/Not Resolved]
  - Injection site reaction [None]
  - Injection site infection [Recovered/Resolved]
  - Injection site reaction [None]
  - Injection site scab [Not Recovered/Not Resolved]
  - Injection site discolouration [Not Recovered/Not Resolved]
  - Injection site atrophy [Not Recovered/Not Resolved]
  - Injection site scar [Not Recovered/Not Resolved]
  - Injection site scab [Not Recovered/Not Resolved]
